FAERS Safety Report 10877973 (Version 1)
Quarter: 2015Q1

REPORT INFORMATION
  Report Type: Spontaneous
  Country: US (occurrence: None)
  Receive Date: 20150225
  Receipt Date: 20150225
  Transmission Date: 20150721
  Serious: Yes (Other)
  Sender: FDA-Public Use
  Company Number: None

PATIENT
  Age: 58 Year
  Sex: Female

DRUGS (17)
  1. POTASSIUM [Concomitant]
     Active Substance: POTASSIUM
  2. SYNTHROID [Concomitant]
     Active Substance: LEVOTHYROXINE SODIUM
  3. CLONIDINE. [Concomitant]
     Active Substance: CLONIDINE
  4. AMLODIPINE [Concomitant]
     Active Substance: AMLODIPINE BESYLATE
  5. RIBAVIRIN. [Concomitant]
     Active Substance: RIBAVIRIN
  6. RIBAVIRIN. [Suspect]
     Active Substance: RIBAVIRIN
     Indication: HEPATITIS
     Route: 048
     Dates: start: 20150202
  7. HARVONI [Suspect]
     Active Substance: LEDIPASVIR\SOFOSBUVIR
     Indication: HEPATITIS
     Route: 048
     Dates: start: 20150202
  8. METHADONE [Concomitant]
     Active Substance: METHADONE HYDROCHLORIDE
  9. HUMALOG [Concomitant]
     Active Substance: INSULIN LISPRO
  10. FUROSEMIDE. [Concomitant]
     Active Substance: FUROSEMIDE
  11. MAGNESIUM [Concomitant]
     Active Substance: MAGNESIUM
  12. CEPHALEXIN. [Concomitant]
     Active Substance: CEPHALEXIN
  13. LISINOPRIL. [Concomitant]
     Active Substance: LISINOPRIL
  14. ATENOLOL. [Concomitant]
     Active Substance: ATENOLOL
  15. LEVOTHYROXINE [Concomitant]
     Active Substance: LEVOTHYROXINE
  16. VITAMIN A AND D [Concomitant]
     Active Substance: LANOLIN\PETROLATUM
  17. VITAMIN D [Concomitant]
     Active Substance: CHOLECALCIFEROL

REACTIONS (6)
  - Abdominal pain upper [None]
  - Platelet count decreased [None]
  - Decreased appetite [None]
  - Insomnia [None]
  - Fatigue [None]
  - Nausea [None]

NARRATIVE: CASE EVENT DATE: 20150220
